FAERS Safety Report 25066347 (Version 3)
Quarter: 2025Q2

REPORT INFORMATION
  Report Type: Spontaneous
  Country: US (occurrence: US)
  Receive Date: 20250312
  Receipt Date: 20250611
  Transmission Date: 20250716
  Serious: Yes (Other)
  Sender: AMGEN
  Company Number: US-AMGEN-USASP2025046624

PATIENT
  Age: 72 Year
  Sex: Female

DRUGS (20)
  1. TEPEZZA [Suspect]
     Active Substance: TEPROTUMUMAB-TRBW
     Indication: Graves^ disease
     Route: 040
     Dates: start: 20230324
  2. TEPEZZA [Suspect]
     Active Substance: TEPROTUMUMAB-TRBW
     Indication: Endocrine ophthalmopathy
     Route: 040
     Dates: start: 20230414
  3. TEPEZZA [Suspect]
     Active Substance: TEPROTUMUMAB-TRBW
     Route: 040
     Dates: start: 20230505
  4. TEPEZZA [Suspect]
     Active Substance: TEPROTUMUMAB-TRBW
     Route: 040
     Dates: start: 20230526
  5. TEPEZZA [Suspect]
     Active Substance: TEPROTUMUMAB-TRBW
     Route: 040
     Dates: start: 20230616
  6. TEPEZZA [Suspect]
     Active Substance: TEPROTUMUMAB-TRBW
     Route: 040
     Dates: start: 20230707
  7. TEPEZZA [Suspect]
     Active Substance: TEPROTUMUMAB-TRBW
     Route: 040
     Dates: start: 20230718
  8. TEPEZZA [Suspect]
     Active Substance: TEPROTUMUMAB-TRBW
     Route: 040
     Dates: start: 20230818
  9. DOXEPIN [Concomitant]
     Active Substance: DOXEPIN
     Dosage: 10 MILLIGRAM, QHS
     Route: 048
  10. SIMVASTATIN [Concomitant]
     Active Substance: SIMVASTATIN
     Dosage: 40 MILLIGRAM, QHS
     Route: 048
  11. GABAPENTIN [Concomitant]
     Active Substance: GABAPENTIN
     Dosage: 300 MILLIGRAM, TID
     Route: 048
  12. ASPIRIN [Concomitant]
     Active Substance: ASPIRIN
     Dosage: 81 MILLIGRAM, QD
     Route: 048
  13. LIDOCAINE\PRILOCAINE [Concomitant]
     Active Substance: LIDOCAINE\PRILOCAINE
     Dosage: UNK UNK, QD (2.5 %-2.5 %)
     Route: 061
  14. VALTREX [Concomitant]
     Active Substance: VALACYCLOVIR HYDROCHLORIDE
     Dosage: 4000 MILLIGRAM, QD
     Route: 048
  15. CALCIUM [Concomitant]
     Active Substance: CALCIUM
     Dosage: 1000 MILLIGRAM, QD
     Route: 048
  16. VITAMIN D3 [Concomitant]
     Active Substance: CHOLECALCIFEROL
     Dosage: 125 MICROGRAM, QD (5,000 UNIT)
     Route: 048
  17. SYNTHROID [Concomitant]
     Active Substance: LEVOTHYROXINE SODIUM
     Dosage: 150 MICROGRAM, QD
     Route: 048
  18. MECLIZINE [Concomitant]
     Active Substance: MECLIZINE HYDROCHLORIDE
     Dosage: 12.5 MILLIGRAM, BID
     Route: 048
  19. OMEPRAZOLE [Concomitant]
     Active Substance: OMEPRAZOLE
     Dosage: 40 MILLIGRAM, QHS
     Route: 048
  20. CAFFEINE [Concomitant]
     Active Substance: CAFFEINE

REACTIONS (34)
  - Deafness permanent [Not Recovered/Not Resolved]
  - Endocrine ophthalmopathy [Unknown]
  - Graves^ disease [Unknown]
  - Intraductal proliferative breast lesion [Unknown]
  - Necrosis [Unknown]
  - Pain [Unknown]
  - Emotional distress [Unknown]
  - Anxiety [Unknown]
  - Discomfort [Unknown]
  - Product use complaint [Unknown]
  - Tinnitus [Not Recovered/Not Resolved]
  - Blood pressure increased [Unknown]
  - Dry skin [Unknown]
  - Joint stiffness [Unknown]
  - Urinary incontinence [Unknown]
  - Pollakiuria [Unknown]
  - Micturition urgency [Unknown]
  - Constipation [Unknown]
  - Fatigue [Unknown]
  - Dry mouth [Unknown]
  - Infusion site bruising [Unknown]
  - Fungal infection [Unknown]
  - Arthralgia [Unknown]
  - Heart rate decreased [Unknown]
  - Body temperature decreased [Unknown]
  - Genital burning sensation [Unknown]
  - Peripheral swelling [Recovering/Resolving]
  - Weight decreased [Unknown]
  - Pain in extremity [Unknown]
  - Urinary tract infection [Unknown]
  - Pruritus [Unknown]
  - Scar [Unknown]
  - Breast calcifications [Unknown]
  - Diarrhoea [Unknown]

NARRATIVE: CASE EVENT DATE: 20230101
